FAERS Safety Report 6520940-7 (Version None)
Quarter: 2009Q4

REPORT INFORMATION
  Report Type: 
  Country: None (occurrence: None)
  Receive Date: 20091229
  Receipt Date: 20091216
  Transmission Date: 20100525
  Serious: Yes (Other)
  Sender: FDA-Public Use
  Company Number: CZ-AMGEN-US365026

PATIENT
  Age: 52 Year
  Sex: Male

DRUGS (2)
  1. ENBREL [Suspect]
     Indication: RHEUMATOID ARTHRITIS
     Route: 058
     Dates: start: 20080922, end: 20090716
  2. ENBREL [Suspect]
     Route: 058
     Dates: start: 20091201

REACTIONS (3)
  - CONDITION AGGRAVATED [None]
  - LATENT TUBERCULOSIS [None]
  - RHEUMATOID ARTHRITIS [None]
